FAERS Safety Report 12569297 (Version 2)
Quarter: 2017Q2

REPORT INFORMATION
  Report Type: Spontaneous
  Country: CA (occurrence: CA)
  Receive Date: 20160719
  Receipt Date: 20170414
  Transmission Date: 20170830
  Serious: Yes (Death, Hospitalization)
  Sender: FDA-Public Use
  Company Number: CA-JNJFOC-20160710593

PATIENT
  Age: 44 Year
  Sex: Male

DRUGS (2)
  1. ACETAMINOPHEN. [Suspect]
     Active Substance: ACETAMINOPHEN
     Route: 048
  2. ACETAMINOPHEN. [Suspect]
     Active Substance: ACETAMINOPHEN
     Indication: PAIN
     Dosage: 10-20 TABLETS DAILY TAKEN FOR SEVERAL MONTHS
     Route: 048

REACTIONS (7)
  - Hepatic failure [Fatal]
  - Decreased appetite [Fatal]
  - Overdose [Fatal]
  - Jaundice [Fatal]
  - Abdominal pain upper [Fatal]
  - Nausea [Fatal]
  - Vomiting [Fatal]
